FAERS Safety Report 14485606 (Version 2)
Quarter: 2018Q1

REPORT INFORMATION
  Report Type: Report from Study
  Country: US (occurrence: BR)
  Receive Date: 20180205
  Receipt Date: 20180316
  Transmission Date: 20180509
  Serious: Yes (Other)
  Sender: FDA-Public Use
  Company Number: US-SUNOVION-2018SUN000363

PATIENT
  Sex: Female
  Weight: 45 kg

DRUGS (1)
  1. INDACATEROL AND GLYCOPYRROLATE [Suspect]
     Active Substance: GLYCOPYRROLATE\INDACATEROL MALEATE
     Indication: EMPHYSEMA
     Dosage: 1 DF (GLYCOPYRRONIUM BROMIDE 50 UG/ INDACATEROL 110 UG), QD (AT BED TIME); RESPIRATORY
     Route: 055
     Dates: start: 201711

REACTIONS (4)
  - Fatigue [Unknown]
  - Asphyxia [Unknown]
  - Malaise [Unknown]
  - Weight decreased [Unknown]
